FAERS Safety Report 8507386-7 (Version None)
Quarter: 2012Q3

REPORT INFORMATION
  Report Type: 
  Country: None (occurrence: None)
  Receive Date: 20120712
  Receipt Date: 20120709
  Transmission Date: 20120928
  Serious: No
  Sender: FDA-Public Use
  Company Number: US-BAYER-2012-069507

PATIENT
  Age: 66 Year
  Sex: Female
  Weight: 91 kg

DRUGS (4)
  1. ALEVE (CAPLET) [Suspect]
     Indication: ARTHRITIS
     Dosage: 1 U, BID
     Route: 048
     Dates: start: 20120628, end: 20120628
  2. MULTI-VITAMIN [Concomitant]
  3. EYE DROPS [Concomitant]
     Indication: GLAUCOMA
  4. TEKTURNA [Concomitant]
     Dosage: 300 MG, UNK

REACTIONS (3)
  - LETHARGY [None]
  - VOMITING [None]
  - DIARRHOEA [None]
